FAERS Safety Report 23335189 (Version 1)
Quarter: 2023Q4

REPORT INFORMATION
  Report Type: Spontaneous
  Country: CA (occurrence: None)
  Receive Date: 20231225
  Receipt Date: 20231225
  Transmission Date: 20240110
  Serious: Yes (Hospitalization, Other)
  Sender: FDA-Public Use
  Company Number: CA-ROCHE-3476249

PATIENT
  Age: 62 Year

DRUGS (1)
  1. OCREVUS [Suspect]
     Active Substance: OCRELIZUMAB
     Indication: Product used for unknown indication
     Dosage: 600MG Q 6 MONTHS
     Route: 065

REACTIONS (5)
  - Prostatic disorder [Unknown]
  - Haemorrhage [Unknown]
  - Renal failure [Unknown]
  - Depressed mood [Unknown]
  - Sensory disturbance [Unknown]

NARRATIVE: CASE EVENT DATE: 20230901
